FAERS Safety Report 23351029 (Version 1)
Quarter: 2023Q4

REPORT INFORMATION
  Report Type: Spontaneous
  Country: US (occurrence: US)
  Receive Date: 20231229
  Receipt Date: 20231229
  Transmission Date: 20240110
  Serious: No
  Sender: FDA-Public Use
  Company Number: US-MYLANLABS-2023M1131037

PATIENT
  Sex: Female
  Weight: 42.64 kg

DRUGS (1)
  1. CORTIFOAM [Suspect]
     Active Substance: HYDROCORTISONE ACETATE
     Indication: Crohn^s disease
     Dosage: UNK, QD (ONCE AT NIGHT FOR 15 NIGHTS)
     Route: 054
     Dates: start: 20231126

REACTIONS (3)
  - Incorrect dose administered [Unknown]
  - Product dose omission issue [Unknown]
  - Device issue [Unknown]
